FAERS Safety Report 8480774-3 (Version None)
Quarter: 2012Q3

REPORT INFORMATION
  Report Type: 
  Country: None (occurrence: None)
  Receive Date: 20120702
  Receipt Date: 20120622
  Transmission Date: 20120928
  Serious: Yes (Hospitalization)
  Sender: FDA-Public Use
  Company Number: US-BAYER-2011-084514

PATIENT
  Age: 19 Year
  Sex: Female

DRUGS (3)
  1. YAZ [Suspect]
     Indication: ORAL CONTRACEPTION
     Dosage: UNK
     Dates: start: 20060101, end: 20090101
  2. NAPROXEN [Concomitant]
     Indication: MIGRAINE
  3. YAZ [Suspect]
     Indication: ACNE

REACTIONS (4)
  - CHOLECYSTECTOMY [None]
  - INJURY [None]
  - ANHEDONIA [None]
  - PAIN [None]
